FAERS Safety Report 19877297 (Version 1)
Quarter: 2021Q3

REPORT INFORMATION
  Report Type: Spontaneous
  Country: US (occurrence: US)
  Receive Date: 20210924
  Receipt Date: 20210924
  Transmission Date: 20211014
  Serious: No
  Sender: FDA-Public Use
  Company Number: US-ORGANON-O2109USA001731

PATIENT
  Age: 30 Year
  Sex: Female
  Weight: 67.58 kg

DRUGS (1)
  1. NEXPLANON [Suspect]
     Active Substance: ETONOGESTREL
     Dosage: 1 DOSAGE FORM (1 ROD FOR 4 YEARS), IN LEFT ARM
     Route: 059
     Dates: start: 20190607

REACTIONS (4)
  - Circumstance or information capable of leading to medication error [Unknown]
  - No adverse event [Unknown]
  - Device breakage [Not Recovered/Not Resolved]
  - Incorrect product administration duration [Unknown]
